FAERS Safety Report 4896731-X (Version None)
Quarter: 2006Q1

REPORT INFORMATION
  Report Type: 
  Country: None (occurrence: None)
  Receive Date: 20060131
  Receipt Date: 20060118
  Transmission Date: 20060701
  Serious: Yes (Other)
  Sender: FDA-Public Use
  Company Number: GB-AMGEN-UK165535

PATIENT
  Sex: Male
  Weight: 73.6 kg

DRUGS (7)
  1. ARANESP [Suspect]
     Indication: RENAL FAILURE CHRONIC
     Route: 058
     Dates: start: 20040609, end: 20060118
  2. FRUSEMIDE [Concomitant]
     Route: 048
     Dates: start: 20050727
  3. DIGOXIN [Concomitant]
     Route: 048
     Dates: start: 20010122
  4. ALLOPURINOL [Concomitant]
     Route: 048
     Dates: start: 20011220
  5. DOXAZOSIN [Concomitant]
     Route: 048
     Dates: start: 20040526
  6. ALFACALCIDOL [Concomitant]
     Route: 048
     Dates: start: 20040701
  7. FERROUS SULFATE TAB [Concomitant]
     Route: 048
     Dates: start: 20040701

REACTIONS (1)
  - THROMBOCYTOPENIA [None]
